FAERS Safety Report 5613836-6 (Version None)
Quarter: 2008Q1

REPORT INFORMATION
  Report Type: 
  Country: None (occurrence: None)
  Receive Date: 20080205
  Receipt Date: 20080124
  Transmission Date: 20080703
  Serious: Yes (Other)
  Sender: FDA-Public Use
  Company Number: US-BAYER-200810402BCC

PATIENT
  Age: 55 Year
  Sex: Female
  Weight: 48 kg

DRUGS (8)
  1. ALKA-SELTZER PLUS ORIGINAL EFFERVESCENT TABLETS [Suspect]
     Indication: NASOPHARYNGITIS
     Route: 048
     Dates: start: 19680101
  2. ASPIRIN [Suspect]
     Indication: DRUG USE FOR UNKNOWN INDICATION
     Route: 048
  3. RANITIDINE [Concomitant]
  4. LORATADINE [Concomitant]
  5. ANACIN [Concomitant]
  6. EC MULTIVITAMIN [Concomitant]
  7. LISINOPRIL [Concomitant]
  8. TRIAMTERENE [Concomitant]

REACTIONS (1)
  - GASTRIC ULCER HAEMORRHAGE [None]
